FAERS Safety Report 9547550 (Version 1)
Quarter: 2013Q3

REPORT INFORMATION
  Report Type: Report from Study
  Country: BR (occurrence: BR)
  Receive Date: 20130924
  Receipt Date: 20130924
  Transmission Date: 20140515
  Serious: Yes (Other)
  Sender: FDA-Public Use
  Company Number: BR-BAYER-2013-114286

PATIENT
  Age: 43 Year
  Sex: Female

DRUGS (5)
  1. BETAFERON [Suspect]
     Indication: MULTIPLE SCLEROSIS
     Dosage: 1 ML, QOD
     Route: 058
     Dates: start: 2012
  2. METFORMIN [Concomitant]
     Indication: DIABETES MELLITUS MANAGEMENT
     Dosage: 500 MG, QD
     Route: 048
  3. RIVOTRIL [Concomitant]
     Indication: DIZZINESS
     Dosage: UNK UNK, BID
     Route: 048
  4. OMEPRAZOLE [Concomitant]
     Indication: GASTRITIS
     Dosage: 1 DF, QD
     Dates: end: 2013
  5. SERTRALINE [Concomitant]
     Indication: SEDATION
     Dosage: 1 DF, QD
     Route: 048

REACTIONS (5)
  - Urinary tract infection [Recovered/Resolved]
  - Gastric ulcer [Not Recovered/Not Resolved]
  - Urinary tract infection [Not Recovered/Not Resolved]
  - Depression [Not Recovered/Not Resolved]
  - Injection site haemorrhage [Recovered/Resolved]
